FAERS Safety Report 7965108-2 (Version None)
Quarter: 2011Q4

REPORT INFORMATION
  Report Type: 
  Country: None (occurrence: None)
  Receive Date: 20111208
  Receipt Date: 20111129
  Transmission Date: 20120403
  Serious: Yes (Other)
  Sender: FDA-Public Use
  Company Number: JP-ROCHE-711168

PATIENT
  Sex: Male
  Weight: 58 kg

DRUGS (24)
  1. DECADRON [Concomitant]
     Route: 041
     Dates: start: 20100608, end: 20100608
  2. RESTAMIN [Concomitant]
     Indication: PROPHYLAXIS
     Route: 048
     Dates: start: 20100427, end: 20100427
  3. RESTAMIN [Concomitant]
     Route: 048
     Dates: start: 20100608, end: 20100608
  4. EMEND [Concomitant]
     Indication: PROPHYLAXIS
     Route: 048
     Dates: start: 20100427, end: 20100427
  5. EMEND [Concomitant]
     Route: 048
     Dates: start: 20100428, end: 20100429
  6. DECADRON [Concomitant]
     Route: 041
     Dates: start: 20100518
  7. FAMOTIDINE [Concomitant]
     Route: 041
     Dates: start: 20100518, end: 20100518
  8. CARBOPLATIN [Concomitant]
     Indication: LUNG ADENOCARCINOMA
     Dosage: DOSAGE IS UNCERTAIN
     Route: 041
  9. KYTRIL [Concomitant]
     Route: 041
     Dates: start: 20100518, end: 20100518
  10. EMEND [Concomitant]
     Route: 058
     Dates: start: 20100608, end: 20100608
  11. EMEND [Concomitant]
     Route: 048
     Dates: start: 20100609, end: 20100610
  12. RESTAMIN [Concomitant]
     Route: 048
     Dates: start: 20100518, end: 20100518
  13. FAMOTIDINE [Concomitant]
     Indication: PROPHYLAXIS
     Route: 041
     Dates: start: 20100427, end: 20100427
  14. PACLITAXEL [Concomitant]
     Indication: LUNG ADENOCARCINOMA
     Route: 041
  15. EMEND [Concomitant]
     Route: 048
     Dates: start: 20100519, end: 20100521
  16. VOLTAREN [Concomitant]
     Route: 048
     Dates: start: 20100430
  17. LOXONIN [Concomitant]
     Route: 048
  18. KYTRIL [Concomitant]
     Indication: PROPHYLAXIS
     Route: 041
     Dates: start: 20100608, end: 20100608
  19. KYTRIL [Concomitant]
     Route: 041
     Dates: start: 20100608
  20. AVASTIN [Suspect]
     Indication: LUNG ADENOCARCINOMA
     Route: 041
     Dates: start: 20100427, end: 20100608
  21. DECADRON [Concomitant]
     Indication: PROPHYLAXIS
     Route: 041
     Dates: start: 20100427, end: 20100427
  22. FAMOTIDINE [Concomitant]
     Route: 041
     Dates: start: 20100608, end: 20100608
  23. EMEND [Concomitant]
     Route: 048
     Dates: start: 20100518, end: 20100518
  24. MUCOSTA [Concomitant]
     Indication: PROPHYLAXIS
     Route: 048
     Dates: start: 20100430

REACTIONS (9)
  - HYPERTENSION [None]
  - CONSTIPATION [None]
  - NAUSEA [None]
  - GASTROOESOPHAGEAL REFLUX DISEASE [None]
  - POSTERIOR REVERSIBLE ENCEPHALOPATHY SYNDROME [None]
  - HYPERLIPIDAEMIA [None]
  - RASH [None]
  - HICCUPS [None]
  - INSOMNIA [None]
